FAERS Safety Report 25223877 (Version 2)
Quarter: 2025Q2

REPORT INFORMATION
  Report Type: Spontaneous
  Country: FR (occurrence: FR)
  Receive Date: 20250422
  Receipt Date: 20250603
  Transmission Date: 20250716
  Serious: No
  Sender: BECTON DICKINSON
  Company Number: FR-BECTON DICKINSON-FR-BD-25-000175

PATIENT

DRUGS (1)
  1. CHLORAPREP [Suspect]
     Active Substance: CHLORHEXIDINE GLUCONATE\ISOPROPYL ALCOHOL
     Indication: Occupational exposure to product
     Route: 003
     Dates: start: 20250221, end: 20250221

REACTIONS (3)
  - Skin lesion [Unknown]
  - Occupational exposure to product [Unknown]
  - Expired product administered [Unknown]

NARRATIVE: CASE EVENT DATE: 20250221
